FAERS Safety Report 10494159 (Version 1)
Quarter: 2014Q4

REPORT INFORMATION
  Report Type: Spontaneous
  Country: US (occurrence: None)
  Receive Date: 20141002
  Receipt Date: 20141002
  Transmission Date: 20150528
  Serious: No
  Sender: FDA-Public Use
  Company Number: None

PATIENT
  Age: 53 Year
  Sex: Female
  Weight: 128.37 kg

DRUGS (2)
  1. BUPROPRION HCL [Suspect]
     Active Substance: BUPROPION HYDROCHLORIDE
     Indication: ANXIETY
     Dosage: 3 TABLETS ONCE DAILY TAKEN BY MOUTH
     Route: 048
     Dates: start: 20140417, end: 20140930
  2. BUPROPRION HCL [Suspect]
     Active Substance: BUPROPION HYDROCHLORIDE
     Indication: DEPRESSION
     Dosage: 3 TABLETS ONCE DAILY TAKEN BY MOUTH
     Route: 048
     Dates: start: 20140417, end: 20140930

REACTIONS (3)
  - Pain [None]
  - Product odour abnormal [None]
  - Abdominal pain upper [None]

NARRATIVE: CASE EVENT DATE: 20140921
